FAERS Safety Report 13926730 (Version 1)
Quarter: 2017Q3

REPORT INFORMATION
  Report Type: Spontaneous
  Country: US (occurrence: US)
  Receive Date: 20170831
  Receipt Date: 20170831
  Transmission Date: 20171127
  Serious: Yes (Other)
  Sender: FDA-Public Use
  Company Number: US-CELGENEUS-USA-20170806592

PATIENT
  Sex: Female

DRUGS (1)
  1. REVLIMID [Suspect]
     Active Substance: LENALIDOMIDE
     Indication: PLASMA CELL MYELOMA
     Dosage: 15 MILLIGRAM
     Route: 048
     Dates: start: 20170616

REACTIONS (10)
  - Insomnia [Unknown]
  - Cough [Unknown]
  - Constipation [Unknown]
  - Pain [Unknown]
  - Hallucination [Unknown]
  - Diarrhoea [Unknown]
  - Pruritus generalised [Unknown]
  - Swelling face [Unknown]
  - Dyskinesia [Unknown]
  - Headache [Unknown]
